FAERS Safety Report 23906584 (Version 1)
Quarter: 2024Q2

REPORT INFORMATION
  Report Type: Spontaneous
  Country: JP (occurrence: JP)
  Receive Date: 20240528
  Receipt Date: 20240528
  Transmission Date: 20240716
  Serious: Yes (Death)
  Sender: FDA-Public Use
  Company Number: None

PATIENT
  Age: 61 Year
  Sex: Female

DRUGS (3)
  1. OLANZAPINE [Suspect]
     Active Substance: OLANZAPINE
     Indication: Psychiatric symptom
     Dosage: ONE WEEK PRIOR TO ADMISSION
  2. OLANZAPINE [Suspect]
     Active Substance: OLANZAPINE
     Indication: Condition aggravated
     Dosage: ONE WEEK PRIOR TO ADMISSION
  3. OLANZAPINE [Suspect]
     Active Substance: OLANZAPINE
     Indication: Delusional disorder, unspecified type
     Dosage: ONE WEEK PRIOR TO ADMISSION

REACTIONS (1)
  - Pulmonary toxicity [Fatal]
